FAERS Safety Report 22178303 (Version 3)
Quarter: 2023Q2

REPORT INFORMATION
  Report Type: Report from Study
  Country: CN (occurrence: CN)
  Receive Date: 20230405
  Receipt Date: 20230428
  Transmission Date: 20230721
  Serious: Yes (Death)
  Sender: FDA-Public Use
  Company Number: CN-BoehringerIngelheim-2023-BI-228699

PATIENT
  Age: 61 Year
  Sex: Male
  Weight: 51 kg

DRUGS (5)
  1. TENECTEPLASE [Suspect]
     Active Substance: TENECTEPLASE
     Indication: Cerebral infarction
     Dosage: STRENGTH AND TOTAL DOSE: 12.8
     Route: 042
     Dates: start: 20230223, end: 20230223
  2. ATORVASTATIN CALCIUM [Concomitant]
     Active Substance: ATORVASTATIN CALCIUM
     Indication: Drug therapy
     Route: 048
     Dates: start: 20230223
  3. ASPIRIN [Concomitant]
     Active Substance: ASPIRIN
     Indication: Drug therapy
     Route: 048
     Dates: start: 20230226
  4. CLOPIDOGREL BISULFATE [Concomitant]
     Active Substance: CLOPIDOGREL BISULFATE
     Indication: Drug therapy
     Route: 048
     Dates: start: 20230226
  5. BUTYLPHTHALIDE [Concomitant]
     Active Substance: BUTYLPHTHALIDE
     Indication: Cranial nerve disorder
     Route: 048
     Dates: start: 20230228

REACTIONS (1)
  - Penile cancer [Fatal]

NARRATIVE: CASE EVENT DATE: 20230329
